FAERS Safety Report 10344074 (Version 1)
Quarter: 2014Q3

REPORT INFORMATION
  Report Type: Spontaneous
  Country: US (occurrence: US)
  Receive Date: 20140728
  Receipt Date: 20140728
  Transmission Date: 20150326
  Serious: No
  Sender: FDA-Public Use
  Company Number: 2014SP002912

PATIENT
  Age: 53 Year
  Sex: Female
  Weight: 108.84 kg

DRUGS (6)
  1. ETANERCEPT [Suspect]
     Active Substance: ETANERCEPT
     Indication: RHEUMATOID ARTHRITIS
     Route: 058
     Dates: start: 201310, end: 20140508
  2. FOLIC ACID. [Concomitant]
     Active Substance: FOLIC ACID
  3. GABAPENTIN. [Concomitant]
     Active Substance: GABAPENTIN
  4. METHOTREXATE [Suspect]
     Active Substance: METHOTREXATE
     Indication: RHEUMATOID ARTHRITIS
  5. OMEPRAZOLE. [Concomitant]
     Active Substance: OMEPRAZOLE
  6. CYMBALTA [Concomitant]
     Active Substance: DULOXETINE HYDROCHLORIDE

REACTIONS (1)
  - Liver function test abnormal [Recovered/Resolved]

NARRATIVE: CASE EVENT DATE: 201401
